FAERS Safety Report 7813886-5 (Version None)
Quarter: 2011Q4

REPORT INFORMATION
  Report Type: 
  Country: None (occurrence: None)
  Receive Date: 20111011
  Receipt Date: 20111005
  Transmission Date: 20120403
  Serious: Yes (Hospitalization, Other)
  Sender: FDA-Public Use
  Company Number: 2011SP039850

PATIENT
  Age: 76 Year
  Sex: Male

DRUGS (6)
  1. MIRTAZAPINE [Suspect]
     Indication: PRODUCT USED FOR UNKNOWN INDICATION
     Dosage: 15,45,60,30 MG
     Dates: end: 20050101
  2. LORAZEPAM [Concomitant]
  3. BENDROFLUAZIDE (BENDROFLUMETHIAZIDE) [Suspect]
  4. AMLODIPINE [Concomitant]
  5. EFFEXOR XR [Suspect]
     Indication: PRODUCT USED FOR UNKNOWN INDICATION
     Dosage: 75 MG
  6. VALSARTAN [Concomitant]

REACTIONS (4)
  - URINARY HESITATION [None]
  - FALL [None]
  - BLOOD SODIUM DECREASED [None]
  - HEAD INJURY [None]
